FAERS Safety Report 24200630 (Version 1)
Quarter: 2024Q3

REPORT INFORMATION
  Report Type: Spontaneous
  Country: US (occurrence: US)
  Receive Date: 20240812
  Receipt Date: 20240812
  Transmission Date: 20241017
  Serious: No
  Sender: ANI
  Company Number: US-ANIPHARMA-2024-US-033228

PATIENT
  Sex: Male

DRUGS (14)
  1. CORTICOTROPIN [Suspect]
     Active Substance: CORTICOTROPIN
     Indication: Nephrotic syndrome
     Dosage: 80 UNITS 3 TIMES A WEEK
     Route: 058
  2. IRON [Concomitant]
     Active Substance: IRON
  3. VITAMIN D3 [Concomitant]
     Active Substance: CHOLECALCIFEROL
  4. TUMS ULTRA 1000 [Concomitant]
  5. ZINC GLUCONATE [Concomitant]
     Active Substance: ZINC GLUCONATE
  6. COLLAGEN ULTRA [Concomitant]
  7. JARDIANCE [Concomitant]
     Active Substance: EMPAGLIFLOZIN
  8. PREDNISONE [Concomitant]
     Active Substance: PREDNISONE
  9. LOSARTAN POTASSIUM [Concomitant]
     Active Substance: LOSARTAN POTASSIUM
  10. OMEPRAZOLE [Concomitant]
     Active Substance: OMEPRAZOLE
  11. SODIUM BICARBONATE [Concomitant]
     Active Substance: SODIUM BICARBONATE
  12. REPATHA [Concomitant]
     Active Substance: EVOLOCUMAB
  13. MAGNESIUM [Concomitant]
     Active Substance: MAGNESIUM
  14. GNP POTASSIUM [Concomitant]

REACTIONS (1)
  - Injection site bruising [Recovered/Resolved]
